FAERS Safety Report 12296596 (Version 1)
Quarter: 2016Q2

REPORT INFORMATION
  Report Type: Other
  Country: US (occurrence: US)
  Receive Date: 20160422
  Receipt Date: 20160422
  Transmission Date: 20160815
  Serious: No
  Sender: FDA-Public Use
  Company Number: US-TRIS PHARMA, INC.-1050876

PATIENT
  Age: 5 Year
  Sex: Female
  Weight: 26.82 kg

DRUGS (1)
  1. KARBINAL ER [Suspect]
     Active Substance: CARBINOXAMINE MALEATE
     Indication: COUGH
     Route: 048
     Dates: start: 20160204, end: 20160204

REACTIONS (3)
  - Fear of death [Unknown]
  - Off label use [Unknown]
  - Death of relative [None]

NARRATIVE: CASE EVENT DATE: 20160204
